FAERS Safety Report 6418050-2 (Version None)
Quarter: 2009Q4

REPORT INFORMATION
  Report Type: 
  Country: None (occurrence: None)
  Receive Date: 20091026
  Receipt Date: 20091013
  Transmission Date: 20100525
  Serious: Yes (Hospitalization)
  Sender: FDA-Public Use
  Company Number: ADR38832009

PATIENT
  Age: 50 Year
  Sex: Male

DRUGS (4)
  1. SIMVASTATIN [Suspect]
     Dosage: 40 MG, 1/1DAYS
     Dates: start: 20061023, end: 20080627
  2. CETIRIZINE [Concomitant]
  3. ALBUTEROL [Concomitant]
  4. SERETIDE [Concomitant]

REACTIONS (3)
  - CONTUSION [None]
  - RASH PRURITIC [None]
  - THROMBOCYTOPENIA [None]
